FAERS Safety Report 24722814 (Version 1)
Quarter: 2024Q4

REPORT INFORMATION
  Report Type: Spontaneous
  Country: TR (occurrence: TR)
  Receive Date: 20241211
  Receipt Date: 20241211
  Transmission Date: 20250114
  Serious: Yes (Other)
  Sender: NOVARTIS
  Company Number: TR-002147023-NVSC2024TR233356

PATIENT
  Sex: Male

DRUGS (1)
  1. TRILEPTAL [Suspect]
     Active Substance: OXCARBAZEPINE
     Indication: Product used for unknown indication
     Dosage: UNK (FOR 25 YEARS BEFORE THE REPORTING DATE)
     Route: 065

REACTIONS (6)
  - Epilepsy [Unknown]
  - Seizure [Unknown]
  - Loss of consciousness [Unknown]
  - Pain [Unknown]
  - Product availability issue [Unknown]
  - Product supply issue [Unknown]
